FAERS Safety Report 16218118 (Version 2)
Quarter: 2019Q2

REPORT INFORMATION
  Report Type: Report from Study
  Country: BE (occurrence: BE)
  Receive Date: 20190419
  Receipt Date: 20190429
  Transmission Date: 20190711
  Serious: Yes (Death, Hospitalization, Other)
  Sender: FDA-Public Use
  Company Number: BE-PFIZER INC-2019166489

PATIENT
  Age: 77 Year
  Sex: Male
  Weight: 87 kg

DRUGS (5)
  1. DEXAMETHASONE. [Suspect]
     Active Substance: DEXAMETHASONE
     Indication: PREMEDICATION
     Dosage: 20 MG, UNK (DOSE AND TOTAL DAILY DOSE: 20 MILLIGRAM, FREQUENCY: UNKNOWN)
     Route: 048
     Dates: start: 20190313, end: 20190314
  2. NEULASTA [Concomitant]
     Active Substance: PEGFILGRASTIM
     Indication: PROPHYLAXIS
     Dosage: 6 MG, UNK (6 MILLIGRAM DAILY, FREQUENCY: UNKNOWN)
     Route: 042
     Dates: start: 20190315, end: 20190315
  3. KEYTRUDA [Suspect]
     Active Substance: PEMBROLIZUMAB
     Indication: SQUAMOUS CELL CARCINOMA OF LUNG
     Dosage: 200 MG, SINGLE (ONCE)
     Dates: start: 20190314, end: 20190314
  4. PACLITAXEL. [Suspect]
     Active Substance: PACLITAXEL
     Indication: SQUAMOUS CELL CARCINOMA OF LUNG
     Dosage: 330 MG, UNK (DOSE AND TOTAL DAILY DOSE 330 MG, FREQUENCY UNKNOWN)
     Route: 042
     Dates: start: 20190314, end: 20190314
  5. CARBOPLATIN. [Suspect]
     Active Substance: CARBOPLATIN
     Indication: SQUAMOUS CELL CARCINOMA OF LUNG
     Dosage: 460 MG, UNK (DOSE AND TOTAL DAILY DOSE: 460 MG, FREQUENCY: UNKNOWN)
     Route: 042
     Dates: start: 20190314, end: 20190314

REACTIONS (1)
  - Gastrointestinal haemorrhage [Fatal]

NARRATIVE: CASE EVENT DATE: 20190321
